APPROVED DRUG PRODUCT: GABAPENTIN
Active Ingredient: GABAPENTIN
Strength: 600MG
Dosage Form/Route: TABLET;ORAL
Application: A075827 | Product #001
Applicant: TEVA PHARMACEUTICALS USA INC
Approved: Dec 15, 2004 | RLD: No | RS: No | Type: DISCN